FAERS Safety Report 4669117-0 (Version None)
Quarter: 2005Q2

REPORT INFORMATION
  Report Type: 
  Country: None (occurrence: None)
  Receive Date: 20050519
  Receipt Date: 20040510
  Transmission Date: 20051028
  Serious: No
  Sender: FDA-Public Use
  Company Number: 7956

PATIENT
  Sex: Female

DRUGS (2)
  1. LEUCOVORIN CALCIUM [Suspect]
     Indication: COLON CANCER
     Dosage: 75 MG
     Route: 048
     Dates: start: 20040401
  2. TEGAFUR URACIL [Suspect]
     Indication: COLON CANCER
     Route: 048
     Dates: start: 20040401

REACTIONS (2)
  - ABDOMINAL PAIN [None]
  - DIARRHOEA [None]
